FAERS Safety Report 6118896-4 (Version None)
Quarter: 2009Q1

REPORT INFORMATION
  Report Type: 
  Country: None (occurrence: None)
  Receive Date: 20090316
  Receipt Date: 20090219
  Transmission Date: 20090719
  Serious: No
  Sender: FDA-Public Use
  Company Number: US-BAYER-200913731GPV

PATIENT
  Age: 21 Year
  Sex: Female

DRUGS (1)
  1. LEPIRUDIN [Suspect]
     Indication: HEPARIN-INDUCED THROMBOCYTOPENIA
     Route: 058

REACTIONS (1)
  - NO ADVERSE EVENT [None]
